FAERS Safety Report 9240085 (Version 1)
Quarter: 2013Q2

REPORT INFORMATION
  Report Type: Spontaneous
  Country: US (occurrence: None)
  Receive Date: 20130417
  Receipt Date: 20130417
  Transmission Date: 20140414
  Serious: Yes (Other)
  Sender: FDA-Public Use
  Company Number: US-ALSI-201300072

PATIENT
  Age: 67 Year
  Sex: Male

DRUGS (2)
  1. CARBON DIOXIDE [Suspect]
     Dosage: TOTAL
  2. (IODIXANOL) 50 ML [Concomitant]

REACTIONS (2)
  - Air embolism [None]
  - Monoplegia [None]
